FAERS Safety Report 13805805 (Version 1)
Quarter: 2017Q3

REPORT INFORMATION
  Report Type: Spontaneous
  Country: US (occurrence: US)
  Receive Date: 20170728
  Receipt Date: 20170728
  Transmission Date: 20171127
  Serious: Yes (Other)
  Sender: FDA-Public Use
  Company Number: US-PFIZER INC-2017323675

PATIENT
  Age: 64 Year
  Sex: Female
  Weight: 70 kg

DRUGS (15)
  1. SENNA S [Concomitant]
     Active Substance: DOCUSATE SODIUM\SENNA LEAF
     Indication: CONSTIPATION
     Dosage: 1-2 DF, ALTERNATE DAY
     Dates: start: 201704
  2. ZOMETA [Concomitant]
     Active Substance: ZOLEDRONIC ACID
     Indication: BONE DISORDER
     Dosage: UNK, PRN
     Route: 041
     Dates: start: 2013
  3. AMITRIPTYLINE [Concomitant]
     Active Substance: AMITRIPTYLINE
     Indication: BRUXISM
     Dosage: 10 MG, 1X/DAY
     Dates: start: 2002
  4. LANTUS [Concomitant]
     Active Substance: INSULIN GLARGINE
     Indication: BLOOD INSULIN ABNORMAL
     Dosage: 30 UNITS, AT NIGHT]
     Dates: start: 201601
  5. DILAUDID [Concomitant]
     Active Substance: HYDROMORPHONE HYDROCHLORIDE
     Indication: PAIN
     Dosage: 2 MG, PRN
     Dates: start: 201605
  6. SENNA S [Concomitant]
     Active Substance: DOCUSATE SODIUM\SENNA LEAF
     Dosage: 2 DF, ALTERNATE DAY[ALTERNATES BETWEEN ONE TABLET AND TWO TABLETS EVERY OTHER DAY]
  7. COLACE [Concomitant]
     Active Substance: DOCUSATE SODIUM
     Indication: CONSTIPATION
     Dosage: 100 MG, AS NEEDED
     Dates: start: 201607
  8. IBRANCE [Suspect]
     Active Substance: PALBOCICLIB
     Dosage: 75 MG, CYCLIC [TWO WEEKS ON AND TWO WEEKS OFF]
  9. RANITIDINE. [Concomitant]
     Active Substance: RANITIDINE
     Indication: GASTROOESOPHAGEAL REFLUX DISEASE
     Dosage: 150 MG, 1X/DAY AT NIGHT
     Dates: start: 2013
  10. FASLODEX [Concomitant]
     Active Substance: FULVESTRANT
     Indication: NEOPLASM MALIGNANT
     Dosage: UNK,, MONTHLY
  11. NOVOLOG [Concomitant]
     Active Substance: INSULIN ASPART
     Indication: BLOOD INSULIN ABNORMAL
     Dosage: 12 UNITS, THREE TIMES A DAY)
     Dates: start: 201601
  12. IBRANCE [Suspect]
     Active Substance: PALBOCICLIB
     Indication: BREAST CANCER METASTATIC
     Dosage: 125 MG, CYCLIC (THREE WEEKS ON AND ONE WEEK OFF)
     Route: 048
     Dates: start: 201608
  13. IBRANCE [Suspect]
     Active Substance: PALBOCICLIB
     Dosage: 75 MG, CYCLIC [75MG THREE WEEKS ON AND ONE WEEK OFF]
  14. CRESTOR [Concomitant]
     Active Substance: ROSUVASTATIN CALCIUM
     Indication: BLOOD CHOLESTEROL ABNORMAL
     Dosage: 10 MG, 1X/DAY
     Dates: start: 2007
  15. KLOR-CON [Concomitant]
     Active Substance: POTASSIUM CHLORIDE
     Indication: BLOOD POTASSIUM ABNORMAL
     Dosage: 60 MEQ, 1X/DAY
     Dates: start: 2012

REACTIONS (9)
  - Platelet count decreased [Recovering/Resolving]
  - Rash pustular [Unknown]
  - Skin exfoliation [Not Recovered/Not Resolved]
  - Dyspnoea [Recovered/Resolved]
  - Fatigue [Recovering/Resolving]
  - Rash [Not Recovered/Not Resolved]
  - Rosacea [Not Recovered/Not Resolved]
  - Constipation [Recovering/Resolving]
  - Weight decreased [Recovering/Resolving]

NARRATIVE: CASE EVENT DATE: 201608
